FAERS Safety Report 4826487-8 (Version None)
Quarter: 2005Q4

REPORT INFORMATION
  Report Type: 
  Country: None (occurrence: None)
  Receive Date: 20051014
  Receipt Date: 20050822
  Transmission Date: 20060501
  Serious: Yes (Other)
  Sender: FDA-Public Use
  Company Number: 2005051283

PATIENT
  Age: 75 Year
  Sex: Female

DRUGS (2)
  1. MACUGEN [Suspect]
     Indication: MACULAR DEGENERATION
     Dosage: (1 IN 6 WK), INTRAVITREOUS
  2. ZYMAX (MAGNESIUM, TOCOPHEROL, ZINC) [Concomitant]

REACTIONS (2)
  - DYSPNOEA [None]
  - URTICARIA [None]
